FAERS Safety Report 21297031 (Version 1)
Quarter: 2022Q3

REPORT INFORMATION
  Report Type: Spontaneous
  Country: NL (occurrence: NL)
  Receive Date: 20220906
  Receipt Date: 20220906
  Transmission Date: 20221026
  Serious: Yes (Life-Threatening, Hospitalization)
  Sender: FDA-Public Use
  Company Number: None

PATIENT
  Sex: Male

DRUGS (16)
  1. PANTOPRAZOLE [Suspect]
     Active Substance: PANTOPRAZOLE
     Indication: Abdominal discomfort
     Dosage: 40 MILLIGRAM DAILY; 1X PER DAY 1 PIECE, PANTOPRAZOL TABLET MSR 40MG / BRAND NAME NOT SPECIFIED, DURA
     Dates: start: 20200101, end: 20220811
  2. SPIRONOLACTONE [Concomitant]
     Active Substance: SPIRONOLACTONE
     Indication: Product used for unknown indication
     Dosage: SPIRONOLACTON TABLET 12,5MG / BRAND NAME NOT SPECIFIED, THERAPY START DATE AND END DATE : ASKU
  3. VITAMINE B COMPLEX FORTE [Concomitant]
     Indication: Product used for unknown indication
     Dosage: VITAMINE B COMPLEX FORTE TABLET / BRAND NAME NOT SPECIFIED, THERAPY START DATE AND END DATE : ASKU
  4. METOPROLOL [Concomitant]
     Active Substance: METOPROLOL
     Indication: Product used for unknown indication
     Dosage: METOPROLOL TABLET   50MG / BRAND NAME NOT SPECIFIED, THERAPY START DATE AND END DATE : ASKU
  5. COMBIVENT [Concomitant]
     Active Substance: ALBUTEROL SULFATE\IPRATROPIUM BROMIDE
     Indication: Product used for unknown indication
     Dosage: NEBULISER FLUID, SALBUTAMOL/IPRATROPIUM NEBULIZER VST 1/0.2MG/ML / COMBIVENT UNIT DOSE NEBULIZER SOL
  6. SIMVASTATIN [Concomitant]
     Active Substance: SIMVASTATIN
     Indication: Product used for unknown indication
     Dosage: SIMVASTATINE TABLET FO 40MG / BRAND NAME NOT SPECIFIED, THERAPY START DATE AND END DATE : ASKU
  7. MACROGOL/ SALT [Concomitant]
     Indication: Product used for unknown indication
     Dosage: DRINK, MACROGOL / SALT DRINK / BRAND NAME NOT SPECIFIED, THERAPY START DATE AND END DATE : ASKU
  8. TAMSULOSIN [Concomitant]
     Active Substance: TAMSULOSIN
     Indication: Product used for unknown indication
     Dosage: MODIFIED-RELEASE CAPSULE,TAMSULOSINE CAPSULE MGA 0,4MG / BRAND NAME NOT SPECIFIED, THERAPY START DAT
  9. ASPIRIN [Concomitant]
     Active Substance: ASPIRIN
     Indication: Product used for unknown indication
     Dosage: ACETYLSALICYLZUUR TABLET  80MG / BRAND NAME NOT SPECIFIED, THERAPY START DATE AND END DATE : ASKU
  10. NOVORAPID [Concomitant]
     Active Substance: INSULIN ASPART
     Indication: Product used for unknown indication
     Dosage: INJECTION FLUID, INSULINE ASPART INJVLST 100E/ML / NOVORAPID INJVLST 100E/ML VIAL10ML, THERAPY START
  11. METFORMIN HYDROCHLORIDE [Concomitant]
     Active Substance: METFORMIN HYDROCHLORIDE
     Indication: Product used for unknown indication
     Dosage: METFORMINE TABLET MGA  500MG / GLUCIENT SR TABLET MVA 500MG, THERAPY START DATE AND END DATE : ASKU
  12. CLOPIDOGREL [Concomitant]
     Active Substance: CLOPIDOGREL BISULFATE
     Indication: Product used for unknown indication
     Dosage: CLOPIDOGREL TABLET  75MG / BRAND NAME NOT SPECIFIED, THERAPY START DATE AND END DATE : ASKU
  13. LOSARTAN [Concomitant]
     Active Substance: LOSARTAN
     Indication: Product used for unknown indication
     Dosage: LOSARTAN TABLET FO  50MG / BRAND NAME NOT SPECIFIED, THERAPY START DATE AND END DATE : ASKU
  14. BECLOMET/FORMOT/GLYCOPYR [Concomitant]
     Indication: Product used for unknown indication
     Dosage: AEROSOL, BECLOMET/FORMOT/GLYCOPYR AEROSOL 87/5/9UG/DO / BRAND NAME NOT SPECIFIED, THERAPY START DATE
  15. ONDANSETRON [Concomitant]
     Active Substance: ONDANSETRON
     Indication: Product used for unknown indication
     Dosage: MELTING TABLET, ONDANSETRON SMELTTABLET 8MG / BRAND NAME NOT SPECIFIED, THERAPY START DATE AND END D
  16. ALENDRONIN/CALCIUMCAR/COLECAL ORA (ALENCA D3 1000) - Non-Current drug [Concomitant]
     Indication: Product used for unknown indication
     Dosage: ALENDRONIN/CALCIUMCAR/COLECAL ORA (ALENCA D3 1000) - NON-CURRENT DRUG / ALENCALCI D3 70MG/1000MG/800

REACTIONS (2)
  - Hypomagnesaemia [Recovering/Resolving]
  - Hypocalcaemia [Recovering/Resolving]
